FAERS Safety Report 14215718 (Version 8)
Quarter: 2019Q4

REPORT INFORMATION
  Report Type: Spontaneous
  Country: US (occurrence: US)
  Receive Date: 20171122
  Receipt Date: 20191114
  Transmission Date: 20200122
  Serious: No
  Sender: FDA-Public Use
  Company Number: US-PFIZER INC-2017495022

PATIENT
  Age: 79 Year
  Sex: Female
  Weight: 75 kg

DRUGS (8)
  1. LYRICA [Suspect]
     Active Substance: PREGABALIN
     Indication: BURSITIS
  2. LYRICA [Suspect]
     Active Substance: PREGABALIN
     Indication: PHYSICAL DECONDITIONING
  3. ZANAFLEX [Concomitant]
     Active Substance: TIZANIDINE HYDROCHLORIDE
     Dosage: 2 MG, AS NEEDED, (EVERY 8 (EIGHT) HOURS )
     Route: 048
     Dates: start: 20171114
  4. LYRICA [Suspect]
     Active Substance: PREGABALIN
     Indication: MALAISE
     Dosage: 200 MG, 2X/DAY
     Route: 048
  5. LYRICA [Suspect]
     Active Substance: PREGABALIN
     Indication: LUMBAR SPINAL STENOSIS
  6. LYRICA [Suspect]
     Active Substance: PREGABALIN
     Indication: SPINAL CLAUDICATION
  7. LYRICA [Suspect]
     Active Substance: PREGABALIN
     Indication: INTERVERTEBRAL DISC DEGENERATION
     Dosage: 100 MG, 2X/DAY
     Route: 048
  8. TRIAMCINOLONE ACETONIDE. [Concomitant]
     Active Substance: TRIAMCINOLONE ACETONIDE
     Dosage: 80 MG, UNK

REACTIONS (2)
  - Drug ineffective [Unknown]
  - Pain in extremity [Recovering/Resolving]
